FAERS Safety Report 8113537-9 (Version None)
Quarter: 2012Q1

REPORT INFORMATION
  Report Type: 
  Country: None (occurrence: None)
  Receive Date: 20120203
  Receipt Date: 20120125
  Transmission Date: 20120608
  Serious: Yes (Hospitalization)
  Sender: FDA-Public Use
  Company Number: US-ELI_LILLY_AND_COMPANY-US201201008563

PATIENT
  Sex: Female

DRUGS (14)
  1. HUMALOG [Suspect]
     Dosage: 20 U, OTHER
     Dates: start: 20010101
  2. HUMALOG [Suspect]
     Dosage: 25 U, EACH EVENING
     Dates: start: 20010101
  3. CIALIS [Suspect]
     Dosage: 10 MG, QD
     Dates: start: 20111201
  4. LIPITOR [Concomitant]
     Dosage: UNK
  5. LANTUS [Concomitant]
     Dosage: UNK
  6. HUMALOG [Suspect]
     Dosage: 25 U, EACH EVENING
     Dates: start: 20010101
  7. HUMALOG [Suspect]
     Dosage: 16 U, EACH MORNING
     Dates: start: 20010101
  8. CIALIS [Suspect]
     Indication: PULMONARY HYPERTENSION
     Dosage: 10 MG, QD
     Dates: start: 20111201
  9. HUMALOG [Suspect]
     Dosage: 20 U, OTHER
     Dates: start: 20010101
  10. CIALIS [Suspect]
     Dosage: 20 MG, QD
  11. CIALIS [Suspect]
     Dosage: 20 MG, QD
  12. METFORMIN HCL [Concomitant]
     Dosage: UNK
  13. HUMALOG [Suspect]
     Indication: TYPE 2 DIABETES MELLITUS
     Dosage: 16 U, EACH MORNING
     Dates: start: 20010101
  14. PLAVIX [Concomitant]
     Dosage: UNK

REACTIONS (3)
  - OFF LABEL USE [None]
  - STENT PLACEMENT [None]
  - PULMONARY HYPERTENSION [None]
